FAERS Safety Report 4653766-X (Version None)
Quarter: 2005Q2

REPORT INFORMATION
  Report Type: 
  Country: None (occurrence: None)
  Receive Date: 20050404
  Receipt Date: 20041214
  Transmission Date: 20051028
  Serious: No
  Sender: FDA-Public Use
  Company Number: US_0411108165

PATIENT
  Age: 29 Year
  Sex: Female
  Weight: 55 kg

DRUGS (3)
  1. CYMBALTA (DULOEXTINE HYDROCHLORIDE) [Suspect]
     Indication: DEPRESSION
     Dosage: 30 MG DAY
     Dates: start: 20041109, end: 20041116
  2. BUPROPION [Concomitant]
  3. GABAPENTIN [Concomitant]

REACTIONS (11)
  - BLOOD PRESSURE INCREASED [None]
  - COGNITIVE DISORDER [None]
  - DYSPHAGIA [None]
  - HEART RATE INCREASED [None]
  - MUSCLE TWITCHING [None]
  - NAUSEA [None]
  - NERVOUSNESS [None]
  - SPEECH DISORDER [None]
  - TONGUE DISORDER [None]
  - TREMOR [None]
  - VISUAL DISTURBANCE [None]
